FAERS Safety Report 6723178-3 (Version None)
Quarter: 2010Q2

REPORT INFORMATION
  Report Type: 
  Country: None (occurrence: None)
  Receive Date: 20100513
  Receipt Date: 20100506
  Transmission Date: 20101027
  Serious: Yes (Hospitalization)
  Sender: FDA-Public Use
  Company Number: JP-JNJFOC-20100502406

PATIENT
  Sex: Female

DRUGS (1)
  1. ITRIZOLE [Suspect]
     Indication: ONYCHOMYCOSIS
     Route: 048

REACTIONS (5)
  - ABDOMINAL PAIN [None]
  - MUSCULAR WEAKNESS [None]
  - PARKINSONISM [None]
  - TREMOR [None]
  - WEIGHT DECREASED [None]
